FAERS Safety Report 10147167 (Version 1)
Quarter: 2014Q2

REPORT INFORMATION
  Report Type: Spontaneous
  Country: FR (occurrence: FR)
  Receive Date: 20140501
  Receipt Date: 20140501
  Transmission Date: 20141212
  Serious: Yes (Life-Threatening)
  Sender: FDA-Public Use
  Company Number: PHHY2014FR052343

PATIENT
  Age: 23 Year
  Sex: Female

DRUGS (2)
  1. BACLOFEN [Suspect]
     Dosage: UNK UKN, UNK
     Route: 048
     Dates: start: 20130920, end: 20130920
  2. CETIRIZINE [Suspect]
     Dosage: UNK UKN, UNK
     Route: 048
     Dates: start: 20130920, end: 20130920

REACTIONS (1)
  - Coma [Recovered/Resolved]
